FAERS Safety Report 5782736-3 (Version None)
Quarter: 2008Q2

REPORT INFORMATION
  Report Type: 
  Country: None (occurrence: None)
  Receive Date: 20080624
  Receipt Date: 20080506
  Transmission Date: 20081010
  Serious: No
  Sender: FDA-Public Use
  Company Number: US-BAYER-200813907NA

PATIENT
  Age: 29 Year
  Sex: Female
  Weight: 61 kg

DRUGS (2)
  1. MIRENA [Suspect]
     Indication: CONTRACEPTION
     Route: 015
     Dates: start: 20080114
  2. ALLEGRA [Concomitant]
     Indication: DRUG USE FOR UNKNOWN INDICATION

REACTIONS (6)
  - ABDOMINAL PAIN [None]
  - BREAST PAIN [None]
  - PROCEDURAL PAIN [None]
  - SINUSITIS [None]
  - VAGINAL HAEMORRHAGE [None]
  - VULVOVAGINAL MYCOTIC INFECTION [None]
